FAERS Safety Report 6500073-6 (Version None)
Quarter: 2009Q4

REPORT INFORMATION
  Report Type: 
  Country: None (occurrence: None)
  Receive Date: 20091214
  Receipt Date: 20091214
  Transmission Date: 20100525
  Serious: Yes (Other)
  Sender: FDA-Public Use
  Company Number: None

PATIENT
  Age: 27 Year
  Sex: Female
  Weight: 48.9 kg

DRUGS (1)
  1. LAMOTRIGINE [Suspect]
     Indication: EPILEPSY
     Dosage: 200 MG TABS 1 BID ORAL SUMMER AND FALL 2009
     Route: 048
     Dates: start: 20090101

REACTIONS (4)
  - DRUG LEVEL INCREASED [None]
  - HEADACHE [None]
  - HOT FLUSH [None]
  - PRODUCT SUBSTITUTION ISSUE [None]
